FAERS Safety Report 7605889-0 (Version None)
Quarter: 2011Q3

REPORT INFORMATION
  Report Type: 
  Country: None (occurrence: None)
  Receive Date: 20110713
  Receipt Date: 20110704
  Transmission Date: 20111222
  Serious: Yes (Other)
  Sender: FDA-Public Use
  Company Number: DE-ELI_LILLY_AND_COMPANY-DE201107000592

PATIENT
  Sex: Male

DRUGS (4)
  1. VITAMIN B-12 [Concomitant]
     Dosage: UNK, UNKNOWN
     Route: 065
  2. DEXAMETHASONE [Concomitant]
     Dosage: UNK, UNKNOWN
     Route: 065
  3. ALIMTA [Suspect]
     Indication: BRONCHIAL CARCINOMA
     Dosage: UNK
     Route: 042
  4. FOLIC ACID [Concomitant]
     Dosage: UNK, UNKNOWN
     Route: 065

REACTIONS (2)
  - DERMATITIS BULLOUS [None]
  - RADIATION SKIN INJURY [None]
